FAERS Safety Report 10453762 (Version 2)
Quarter: 2014Q4

REPORT INFORMATION
  Report Type: Spontaneous
  Country: US (occurrence: US)
  Receive Date: 20140915
  Receipt Date: 20141205
  Transmission Date: 20150528
  Serious: No
  Sender: FDA-Public Use
  Company Number: US-BRISTOL-MYERS SQUIBB COMPANY-21265806

PATIENT
  Age: 56 Year
  Sex: Male
  Weight: 70.29 kg

DRUGS (8)
  1. SPIRONOLACTONE. [Concomitant]
     Active Substance: SPIRONOLACTONE
  2. IRBESARTAN. [Concomitant]
     Active Substance: IRBESARTAN
  3. FUROSEMIDE. [Concomitant]
     Active Substance: FUROSEMIDE
  4. ELIQUIS [Suspect]
     Active Substance: APIXABAN
     Dates: start: 201407
  5. GLIPIZIDE. [Concomitant]
     Active Substance: GLIPIZIDE
  6. PANTOPRAZOLE [Concomitant]
     Active Substance: PANTOPRAZOLE SODIUM
  7. DIGOXIN. [Concomitant]
     Active Substance: DIGOXIN
  8. CARVEDILOL. [Concomitant]
     Active Substance: CARVEDILOL

REACTIONS (1)
  - Sexual dysfunction [Unknown]

NARRATIVE: CASE EVENT DATE: 201407
